FAERS Safety Report 25750928 (Version 2)
Quarter: 2025Q4

REPORT INFORMATION
  Report Type: Spontaneous
  Country: JP (occurrence: JP)
  Receive Date: 20250902
  Receipt Date: 20251024
  Transmission Date: 20260117
  Serious: Yes (Death, Hospitalization, Other)
  Sender: OTSUKA
  Company Number: JP-MMM-Otsuka-V5Q93WC8

PATIENT
  Age: 82 Year
  Sex: Male

DRUGS (4)
  1. REXULTI [Suspect]
     Active Substance: BREXPIPRAZOLE
     Indication: Product used for unknown indication
     Dosage: 1 MG
  2. REXULTI [Suspect]
     Active Substance: BREXPIPRAZOLE
     Indication: Product used for unknown indication
     Dosage: 0.5 MG
     Dates: start: 20250709, end: 20250722
  3. RIVOTRIL [Concomitant]
     Active Substance: CLONAZEPAM
     Indication: Product used for unknown indication
     Dosage: 1T
     Route: 065
     Dates: start: 20250723, end: 20250805
  4. RIVOTRIL [Concomitant]
     Active Substance: CLONAZEPAM
     Dosage: 2T
     Route: 065

REACTIONS (3)
  - Dysstasia [Fatal]
  - Cerebral infarction [Unknown]
  - Treatment noncompliance [Unknown]

NARRATIVE: CASE EVENT DATE: 20250701
